FAERS Safety Report 23465639 (Version 1)
Quarter: 2024Q1

REPORT INFORMATION
  Report Type: Spontaneous
  Country: US (occurrence: None)
  Receive Date: 20240131
  Receipt Date: 20240131
  Transmission Date: 20240410
  Serious: Yes (Death)
  Sender: FDA-Public Use
  Company Number: None

PATIENT
  Age: 51 Year
  Sex: Female

DRUGS (18)
  1. BOTOX [Suspect]
     Active Substance: ONABOTULINUMTOXINA
     Dosage: OTHER QUANTITY : 155UNITS;?
     Route: 058
     Dates: start: 20230524
  2. CORLANOR [Concomitant]
     Active Substance: IVABRADINE HYDROCHLORIDE
  3. DIPHENHYDRAMINE [Concomitant]
  4. FLEXERIL [Concomitant]
  5. HYDROCORTISONE [Concomitant]
  6. LINZESS [Concomitant]
  7. MELATONIN [Concomitant]
  8. NARCAN [Concomitant]
  9. NORCO [Concomitant]
  10. OMEPRAZOLE [Concomitant]
  11. PRADAXA [Concomitant]
  12. PROMETHAZINE [Concomitant]
  13. PROPRANOLOL [Concomitant]
     Active Substance: PROPRANOLOL HYDROCHLORIDE
  14. RIZATRIPTAN [Concomitant]
  15. SERTRALINE [Concomitant]
  16. SINGULAIR [Concomitant]
  17. XARELTO [Concomitant]
  18. EMGALITY [Concomitant]

REACTIONS (1)
  - Death [None]

NARRATIVE: CASE EVENT DATE: 20231020
